FAERS Safety Report 8595083-1 (Version None)
Quarter: 2012Q3

REPORT INFORMATION
  Report Type: 
  Country: None (occurrence: None)
  Receive Date: 20120807
  Receipt Date: 20120807
  Transmission Date: 20120928
  Serious: Yes (Other)
  Sender: FDA-Public Use
  Company Number: None

PATIENT
  Age: 79 Year
  Sex: Male
  Weight: 68.9467 kg

DRUGS (4)
  1. KRYSTEXXA [Suspect]
     Indication: CALCINOSIS
     Dosage: INFUSION/AMT NOT KNOWN - BI WEEKLY INFUSION
     Dates: start: 20120319
  2. KRYSTEXXA [Suspect]
     Indication: CALCINOSIS
     Dosage: INFUSION/AMT NOT KNOWN - BI WEEKLY INFUSION
     Dates: start: 20120430
  3. KRYSTEXXA [Suspect]
     Indication: CALCINOSIS
     Dosage: INFUSION/AMT NOT KNOWN - BI WEEKLY INFUSION
     Dates: start: 20120402
  4. KRYSTEXXA [Suspect]
     Indication: CALCINOSIS
     Dosage: INFUSION/AMT NOT KNOWN - BI WEEKLY INFUSION
     Dates: start: 20120416

REACTIONS (2)
  - CONDITION AGGRAVATED [None]
  - GOUT [None]
